FAERS Safety Report 4929362-3 (Version None)
Quarter: 2006Q1

REPORT INFORMATION
  Report Type: 
  Country: None (occurrence: None)
  Receive Date: 20060224
  Receipt Date: 20060216
  Transmission Date: 20060701
  Serious: Yes (Hospitalization, Other)
  Sender: FDA-Public Use
  Company Number: HQWYE046522AUG05

PATIENT
  Age: 6 Year
  Sex: Male

DRUGS (4)
  1. PANTOZOL (PANTOPRAZOLE, INJECTION) [Suspect]
     Indication: ILL-DEFINED DISORDER
     Dosage: 20 MG 2X PER 1 DAY, INTRAVENOUS
     Route: 042
     Dates: start: 20050706, end: 20050728
  2. AMPHO-MORONAL (AMPHOTERICIN B) [Concomitant]
  3. DIFLUCAN [Concomitant]
  4. MAGNESIUM VERLA (MAGNESIUM GLUTAMATE) [Concomitant]

REACTIONS (3)
  - CATHETER RELATED COMPLICATION [None]
  - INJECTION SITE SWELLING [None]
  - VENA CAVA THROMBOSIS [None]
